FAERS Safety Report 15088498 (Version 2)
Quarter: 2018Q3

REPORT INFORMATION
  Report Type: Spontaneous
  Country: SK (occurrence: SK)
  Receive Date: 20180629
  Receipt Date: 20180725
  Transmission Date: 20181010
  Serious: Yes (Other)
  Sender: FDA-Public Use
  Company Number: SK-009507513-1806SVK009224

PATIENT
  Sex: Female
  Weight: 107 kg

DRUGS (17)
  1. URAPIDIL HYDROCHLORIDE [Suspect]
     Active Substance: URAPIDIL HYDROCHLORIDE
     Indication: HYPERTENSION
  2. L?THYROXIN [Suspect]
     Active Substance: LEVOTHYROXINE SODIUM
     Dosage: UNK
     Route: 065
  3. TRIMETAZIDINE HYDROCHLORIDE [Suspect]
     Active Substance: TRIMETAZIDINE DIHYDROCHLORIDE
     Indication: PRODUCT USED FOR UNKNOWN INDICATION
     Dosage: UNK
     Route: 065
  4. METFORMIN HYDROCHLORIDE. [Suspect]
     Active Substance: METFORMIN HYDROCHLORIDE
     Indication: PRODUCT USED FOR UNKNOWN INDICATION
     Dosage: UNK
     Route: 065
  5. MOLSIDOMINE [Suspect]
     Active Substance: MOLSIDOMINE
     Indication: PRODUCT USED FOR UNKNOWN INDICATION
     Dosage: UNK
     Route: 065
  6. TENSIOMIN [Suspect]
     Active Substance: CAPTOPRIL
     Indication: PRODUCT USED FOR UNKNOWN INDICATION
     Dosage: UNK
     Route: 065
  7. AMLODIPINE [Suspect]
     Active Substance: AMLODIPINE BESYLATE
     Indication: PRODUCT USED FOR UNKNOWN INDICATION
     Dosage: UNK
     Route: 065
  8. TELMISARTAN. [Suspect]
     Active Substance: TELMISARTAN
     Indication: PRODUCT USED FOR UNKNOWN INDICATION
     Dosage: UNK
     Route: 065
  9. MOXONIDINE [Suspect]
     Active Substance: MOXONIDINE
     Indication: PRODUCT USED FOR UNKNOWN INDICATION
     Dosage: UNK
     Route: 065
  10. METFORMIN HYDROCHLORIDE. [Suspect]
     Active Substance: METFORMIN HYDROCHLORIDE
     Dosage: UNK
     Route: 065
  11. SIMVASTATIN. [Suspect]
     Active Substance: SIMVASTATIN
     Indication: PRODUCT USED FOR UNKNOWN INDICATION
     Dosage: UNK
     Route: 065
  12. URAPIDIL HYDROCHLORIDE [Suspect]
     Active Substance: URAPIDIL HYDROCHLORIDE
     Indication: OBESITY
     Dosage: UNK
     Route: 065
  13. AMLODIPINE [Suspect]
     Active Substance: AMLODIPINE BESYLATE
     Dosage: UNK
     Route: 065
  14. DOXAZOSIN [Suspect]
     Active Substance: DOXAZOSIN\DOXAZOSIN MESYLATE
     Indication: PRODUCT USED FOR UNKNOWN INDICATION
     Dosage: UNK
     Route: 065
  15. L?THYROXIN [Suspect]
     Active Substance: LEVOTHYROXINE SODIUM
     Indication: PRODUCT USED FOR UNKNOWN INDICATION
     Dosage: UNK
     Route: 065
  16. URAPIDIL HYDROCHLORIDE [Suspect]
     Active Substance: URAPIDIL HYDROCHLORIDE
     Indication: DIABETES MELLITUS
  17. CARVEDILOL. [Suspect]
     Active Substance: CARVEDILOL
     Indication: PRODUCT USED FOR UNKNOWN INDICATION
     Dosage: UNK
     Route: 065

REACTIONS (4)
  - Blood pressure abnormal [Unknown]
  - Electrocardiogram abnormal [Unknown]
  - Diastolic dysfunction [Unknown]
  - Left ventricular hypertrophy [Unknown]
